FAERS Safety Report 14138927 (Version 1)
Quarter: 2017Q4

REPORT INFORMATION
  Report Type: Spontaneous
  Country: US (occurrence: US)
  Receive Date: 20171027
  Receipt Date: 20171027
  Transmission Date: 20180321
  Serious: No
  Sender: FDA-Public Use
  Company Number: US-009507513-1710USA006338

PATIENT
  Age: 24 Year
  Sex: Female
  Weight: 115 kg

DRUGS (1)
  1. NEXPLANON [Suspect]
     Active Substance: ETONOGESTREL
     Indication: CONTRACEPTION
     Dosage: EVERY 3 YEARS
     Route: 059

REACTIONS (4)
  - Pruritus [Unknown]
  - Rash [Unknown]
  - Hypoaesthesia [Unknown]
  - Implant site rash [Unknown]

NARRATIVE: CASE EVENT DATE: 201710
